FAERS Safety Report 5640141-4 (Version None)
Quarter: 2008Q1

REPORT INFORMATION
  Report Type: 
  Country: None (occurrence: None)
  Receive Date: 20080225
  Receipt Date: 20080218
  Transmission Date: 20080703
  Serious: Yes (Death)
  Sender: FDA-Public Use
  Company Number: A0711383A

PATIENT
  Age: 67 Year
  Sex: Male
  Weight: 53.8873 kg

DRUGS (2)
  1. ADVAIR DISKUS 100/50 [Suspect]
     Indication: CHRONIC OBSTRUCTIVE PULMONARY DISEASE
     Dosage: TWICE PER DAY / INHALED
     Route: 055
     Dates: start: 20070201, end: 20070214
  2. TIOTROPIUM [Concomitant]

REACTIONS (1)
  - DEATH [None]
